FAERS Safety Report 7771615-8 (Version None)
Quarter: 2011Q3

REPORT INFORMATION
  Report Type: 
  Country: None (occurrence: None)
  Receive Date: 20110922
  Receipt Date: 20110211
  Transmission Date: 20111222
  Serious: Yes (Hospitalization)
  Sender: FDA-Public Use
  Company Number: US-ASTRAZENECA-2010SE55835

PATIENT
  Age: 19736 Day
  Sex: Female
  Weight: 67.1 kg

DRUGS (9)
  1. KLONOPIN [Concomitant]
  2. INDERAL [Concomitant]
  3. SEROQUEL [Suspect]
     Route: 048
  4. REMERON [Concomitant]
  5. ZYRTEC [Concomitant]
  6. VENTOLIN HFA [Concomitant]
  7. VESICARE [Concomitant]
  8. SEROQUEL [Suspect]
     Indication: SLEEP DISORDER
     Route: 048
  9. SEROQUEL [Suspect]
     Route: 048

REACTIONS (2)
  - RESPIRATORY FAILURE [None]
  - PNEUMONIA [None]
